FAERS Safety Report 25507715 (Version 1)
Quarter: 2025Q3

REPORT INFORMATION
  Report Type: Spontaneous
  Country: US (occurrence: US)
  Receive Date: 20250703
  Receipt Date: 20250703
  Transmission Date: 20251021
  Serious: Yes (Hospitalization, Other)
  Sender: SANOFI AVENTIS
  Company Number: US-SA-2025SA184441

PATIENT
  Age: 72 Year
  Sex: Female
  Weight: 75 kg

DRUGS (11)
  1. CEREZYME [Suspect]
     Active Substance: IMIGLUCERASE
     Indication: Gaucher^s disease
     Dosage: 2000 IU, QOW
     Route: 042
     Dates: start: 20190911, end: 2025
  2. SODIUM CHLORIDE [Concomitant]
     Active Substance: SODIUM CHLORIDE
  3. STERILE WATER [Concomitant]
     Active Substance: WATER
  4. EPINEPHRINE [Concomitant]
     Active Substance: EPINEPHRINE
  5. HYDROCORTISONE [Concomitant]
     Active Substance: HYDROCORTISONE
  6. NYSTOP [Concomitant]
     Active Substance: NYSTATIN
  7. SODIUM CHLORIDE [Concomitant]
     Active Substance: SODIUM CHLORIDE
  8. AMLODIPINE BESYLATE [Concomitant]
     Active Substance: AMLODIPINE BESYLATE
  9. LORAZEPAM [Concomitant]
     Active Substance: LORAZEPAM
  10. ELIQUIS [Concomitant]
     Active Substance: APIXABAN
  11. OMEPRAZOLE [Concomitant]
     Active Substance: OMEPRAZOLE

REACTIONS (2)
  - Knee operation [Unknown]
  - Procedural pain [Unknown]

NARRATIVE: CASE EVENT DATE: 20250401
